FAERS Safety Report 10747352 (Version 1)
Quarter: 2015Q1

REPORT INFORMATION
  Report Type: Report from Study
  Country: US (occurrence: US)
  Receive Date: 20150129
  Receipt Date: 20150129
  Transmission Date: 20150721
  Serious: Yes (Hospitalization)
  Sender: FDA-Public Use
  Company Number: US-AMGEN-USACT2015007186

PATIENT
  Age: 52 Year
  Sex: Female
  Weight: 71.7 kg

DRUGS (3)
  1. TAXOL [Concomitant]
     Active Substance: PACLITAXEL
     Indication: LUNG ADENOCARCINOMA
     Dosage: 100 MG, UNK
     Dates: start: 20141216
  2. PANITUMUMAB [Suspect]
     Active Substance: PANITUMUMAB
     Indication: LUNG ADENOCARCINOMA
     Dosage: 140 MG, UNK
     Route: 065
     Dates: start: 20141216
  3. CARBOPLATIN. [Concomitant]
     Active Substance: CARBOPLATIN
     Indication: LUNG ADENOCARCINOMA
     Dosage: 235 MG, UNK
     Dates: start: 20141216

REACTIONS (1)
  - Oesophagitis [Not Recovered/Not Resolved]

NARRATIVE: CASE EVENT DATE: 20150121
